FAERS Safety Report 20330394 (Version 1)
Quarter: 2022Q1

REPORT INFORMATION
  Report Type: Report from Study
  Country: GB (occurrence: GB)
  Receive Date: 20220113
  Receipt Date: 20220113
  Transmission Date: 20220424
  Serious: No
  Sender: FDA-Public Use
  Company Number: GB-JNJFOC-20211051185

PATIENT
  Age: 57 Year
  Sex: Female

DRUGS (1)
  1. TREMFYA [Suspect]
     Active Substance: GUSELKUMAB
     Indication: Psoriasis
     Route: 058
     Dates: start: 20211014

REACTIONS (3)
  - Product leakage [Unknown]
  - Wrong technique in product usage process [Unknown]
  - Psoriasis [Unknown]

NARRATIVE: CASE EVENT DATE: 20211014
